FAERS Safety Report 11380191 (Version 1)
Quarter: 2015Q3

REPORT INFORMATION
  Report Type: Spontaneous
  Country: US (occurrence: None)
  Receive Date: 20150813
  Receipt Date: 20150813
  Transmission Date: 20151125
  Serious: Yes (Other)
  Sender: FDA-Public Use
  Company Number: None

PATIENT
  Age: 83 Year
  Sex: Female

DRUGS (1)
  1. PROMACTA [Suspect]
     Active Substance: ELTROMBOPAG OLAMINE
     Indication: IMMUNE THROMBOCYTOPENIC PURPURA
     Route: 048
     Dates: start: 20150715

REACTIONS (6)
  - Headache [None]
  - Fatigue [None]
  - Pruritus [None]
  - Rash [None]
  - Alopecia [None]
  - Decreased appetite [None]

NARRATIVE: CASE EVENT DATE: 20150715
